FAERS Safety Report 5500313-6 (Version None)
Quarter: 2007Q4

REPORT INFORMATION
  Report Type: 
  Country: None (occurrence: None)
  Receive Date: 20071025
  Receipt Date: 20070831
  Transmission Date: 20080405
  Serious: Yes (Disabling)
  Sender: FDA-Public Use
  Company Number: GB-MHRA-ADR 20154963

PATIENT
  Age: 63 Year
  Sex: Female

DRUGS (1)
  1. TERBINAFINE TABLET [Suspect]
     Indication: ONYCHOMYCOSIS
     Dosage: 250 MG, ORAL
     Route: 048
     Dates: start: 20070204, end: 20070808

REACTIONS (1)
  - COLITIS [None]
